FAERS Safety Report 4401340-2 (Version None)
Quarter: 2004Q3

REPORT INFORMATION
  Report Type: 
  Country: None (occurrence: None)
  Receive Date: 20040907
  Receipt Date: 20040317
  Transmission Date: 20050211
  Serious: No
  Sender: FDA-Public Use
  Company Number: US-BRISTOL-MYERS SQUIBB COMPANY-12535514

PATIENT
  Age: 74 Year
  Sex: Female
  Weight: 44 kg

DRUGS (6)
  1. COUMADIN [Suspect]
     Indication: CARDIAC FAILURE
     Dosage: FROM 08 TO 14-MAR-2004: 2MG DAILY FROM 15 TO 20-MAR-2004: 1MG AND 2MG ALTERNATING DAILY
     Route: 048
  2. SOTALOL HCL [Concomitant]
  3. PLETAL [Concomitant]
  4. POTASSIUM [Concomitant]
  5. FUROSEMIDE [Concomitant]
  6. LISINOPRIL [Concomitant]

REACTIONS (1)
  - INTERNATIONAL NORMALISED RATIO ABNORMAL [None]
